FAERS Safety Report 26214962 (Version 1)
Quarter: 2025Q4

REPORT INFORMATION
  Report Type: Other
  Country: US (occurrence: US)
  Receive Date: 20251230
  Receipt Date: 20251230
  Transmission Date: 20260117
  Serious: Yes (Hospitalization, Other)
  Sender: HLS THERAPEUTICS
  Company Number: US-HLS-202500443

PATIENT
  Age: 48 Year
  Sex: Female

DRUGS (16)
  1. CLOZAPINE [Suspect]
     Active Substance: CLOZAPINE
     Indication: Schizophrenia
     Dosage: STARTS 6 MONTHS BEFORE KD (KETOGENIC DIET)
     Route: 065
  2. ACETAMINOPHEN [Concomitant]
     Active Substance: ACETAMINOPHEN
     Indication: Dysmenorrhoea
     Dosage: DOSE PRN (AS PER NEEDED)
     Route: 065
  3. MILK OF MAGNESIA [Concomitant]
     Active Substance: MAGNESIUM HYDROXIDE
     Indication: Constipation
     Dosage: DOSE PRN (AS PER NEEDED)
     Route: 065
  4. LORAZEPAM [Concomitant]
     Active Substance: LORAZEPAM
     Indication: Agitation
     Dosage: PRN (ASP ER NEEDED) DOSE
     Route: 065
  5. LORAZEPAM [Concomitant]
     Active Substance: LORAZEPAM
     Indication: Akathisia
     Dosage: PRN (ASP ER NEEDED) DOSE
     Route: 065
  6. LORAZEPAM [Concomitant]
     Active Substance: LORAZEPAM
     Indication: Anxiety
     Dosage: PRN (ASP ER NEEDED) DOSE
     Route: 065
  7. LORAZEPAM [Concomitant]
     Active Substance: LORAZEPAM
     Indication: Insomnia
     Dosage: PRN (ASP ER NEEDED) DOSE
     Route: 065
  8. VITAMINS [Concomitant]
     Active Substance: VITAMINS
     Indication: Product used for unknown indication
     Route: 065
  9. PROPRANOLOL [Concomitant]
     Active Substance: PROPRANOLOL HYDROCHLORIDE
     Indication: Akathisia
     Dosage: START APPROX. ~3 MONTHS BEFORE KD (KETOGENIC DIET)
     Route: 065
  10. OXYBUTYNIN [Concomitant]
     Active Substance: OXYBUTYNIN
     Indication: Enuresis
     Dosage: START APPROX. ~3 MONTHS BEFORE KD
     Route: 065
  11. AMLODIPINE [Concomitant]
     Active Substance: AMLODIPINE BESYLATE
     Indication: Hypertension
     Dosage: START APPROX. ~5 MONTHS BEFORE KD (KETOGENIC DIET)
     Route: 065
  12. METFORMIN [Concomitant]
     Active Substance: METFORMIN HYDROCHLORIDE
     Indication: Metabolic syndrome
     Dosage: START APROX.~6 MONTHS BEFORE KD (KETOGENIC DIET)
     Route: 065
  13. DIVALPROEX SODIUM [Concomitant]
     Active Substance: DIVALPROEX SODIUM
     Indication: Mood swings
     Dosage: START APPROX ~21 MONTHS BEFORE KD (KETOGENIC DIET)
     Route: 065
  14. OLANZAPINE [Suspect]
     Active Substance: OLANZAPINE
     Indication: Schizophrenia
     Dosage: START APPROX. 20 MONTHS BEFORE KD (KETOGENIC DIET)
     Route: 065
  15. FERROUS SULFATE [Concomitant]
     Active Substance: FERROUS SULFATE
     Indication: Anaemia
     Route: 065
  16. IPRATROPIUM BROMIDE [Concomitant]
     Active Substance: IPRATROPIUM BROMIDE
     Indication: Salivary hypersecretion
     Route: 065

REACTIONS (4)
  - Extrapyramidal disorder [Recovering/Resolving]
  - Salivary hypersecretion [Recovered/Resolved]
  - Muscle rigidity [Recovered/Resolved]
  - Tinnitus [Recovered/Resolved]
